FAERS Safety Report 16226857 (Version 2)
Quarter: 2019Q4

REPORT INFORMATION
  Report Type: Report from Study
  Country: US (occurrence: US)
  Receive Date: 20190423
  Receipt Date: 20191030
  Transmission Date: 20200122
  Serious: Yes (Other)
  Sender: FDA-Public Use
  Company Number: US-BIOGEN-2019BI00727654

PATIENT
  Age: 40 Year
  Sex: Female

DRUGS (26)
  1. AVONEX [Interacting]
     Active Substance: INTERFERON BETA-1A
  2. AVONEX PEN [Interacting]
     Active Substance: INTERFERON BETA-1A
  3. METHYLPREDNISOLONE. [Concomitant]
     Active Substance: METHYLPREDNISOLONE
     Indication: PRODUCT USED FOR UNKNOWN INDICATION
     Route: 065
  4. SINGULAIR [Concomitant]
     Active Substance: MONTELUKAST SODIUM
     Indication: PRODUCT USED FOR UNKNOWN INDICATION
     Route: 065
  5. CYCLOBENZAPRINE HCL [Concomitant]
     Active Substance: CYCLOBENZAPRINE HYDROCHLORIDE
     Indication: PRODUCT USED FOR UNKNOWN INDICATION
     Route: 065
  6. AVONEX [Interacting]
     Active Substance: INTERFERON BETA-1A
  7. LIPITOR [Interacting]
     Active Substance: ATORVASTATIN CALCIUM
     Indication: PRODUCT USED FOR UNKNOWN INDICATION
     Route: 065
  8. AVONEX [Interacting]
     Active Substance: INTERFERON BETA-1A
  9. PROVENTIL HFA [Concomitant]
     Active Substance: ALBUTEROL SULFATE
     Indication: PRODUCT USED FOR UNKNOWN INDICATION
     Route: 065
  10. AVONEX [Interacting]
     Active Substance: INTERFERON BETA-1A
  11. AVONEX [Interacting]
     Active Substance: INTERFERON BETA-1A
  12. XANAX [Concomitant]
     Active Substance: ALPRAZOLAM
     Indication: PRODUCT USED FOR UNKNOWN INDICATION
     Route: 065
  13. AVONEX PEN [Interacting]
     Active Substance: INTERFERON BETA-1A
  14. HYDROCODONE/ACETAMINOPHEN [Concomitant]
     Active Substance: ACETAMINOPHEN\HYDROCODONE
     Indication: PRODUCT USED FOR UNKNOWN INDICATION
     Route: 065
  15. METOPROLOL SUCCINATE ER [Concomitant]
     Active Substance: METOPROLOL SUCCINATE
     Indication: PRODUCT USED FOR UNKNOWN INDICATION
     Route: 065
  16. ROSUVASTATIN. [Concomitant]
     Active Substance: ROSUVASTATIN
     Indication: PRODUCT USED FOR UNKNOWN INDICATION
     Route: 065
  17. AVONEX [Interacting]
     Active Substance: INTERFERON BETA-1A
  18. AVONEX [Interacting]
     Active Substance: INTERFERON BETA-1A
  19. AVONEX PEN [Interacting]
     Active Substance: INTERFERON BETA-1A
  20. AVONEX PEN [Interacting]
     Active Substance: INTERFERON BETA-1A
  21. IBUPROFEN. [Concomitant]
     Active Substance: IBUPROFEN
     Indication: PRODUCT USED FOR UNKNOWN INDICATION
     Route: 065
  22. NASONEX [Concomitant]
     Active Substance: MOMETASONE FUROATE
     Indication: PRODUCT USED FOR UNKNOWN INDICATION
     Route: 065
  23. ASPIRIN. [Concomitant]
     Active Substance: ASPIRIN
     Indication: PRODUCT USED FOR UNKNOWN INDICATION
     Route: 065
  24. AVONEX [Suspect]
     Active Substance: INTERFERON BETA-1A
     Indication: MULTIPLE SCLEROSIS
     Route: 030
  25. AVONEX [Interacting]
     Active Substance: INTERFERON BETA-1A
  26. DIFLUCAN [Concomitant]
     Active Substance: FLUCONAZOLE
     Indication: PRODUCT USED FOR UNKNOWN INDICATION
     Route: 065

REACTIONS (8)
  - Coronary artery disease [Recovered/Resolved]
  - Myocardial infarction [Not Recovered/Not Resolved]
  - Influenza [Unknown]
  - Epistaxis [Unknown]
  - Drug interaction [Unknown]
  - Muscle discomfort [Unknown]
  - Fatigue [Unknown]
  - Arthritis [Not Recovered/Not Resolved]

NARRATIVE: CASE EVENT DATE: 200102
